FAERS Safety Report 7006750 (Version 1)
Quarter: 2020Q3

REPORT INFORMATION
  Report Type: Report from Study
  Country: KR (occurrence: KR)
  Receive Date: 20090528
  Receipt Date: 20090528
  Transmission Date: 20201105
  Serious: Yes (Other)
  Sender: FDA-Public Use
  Company Number: KR-ALLERGAN-0907274US

PATIENT
  Age: 62 Year
  Sex: Male

DRUGS (4)
  1. GENTAMICIN SULFATE. [Concomitant]
     Active Substance: GENTAMICIN SULFATE
     Indication: ULCERATIVE KERATITIS
     Dosage: 1 GTT, 10 TIMES
     Route: 047
     Dates: start: 20090323
  2. CEFAZOLIN [Concomitant]
     Active Substance: CEFAZOLIN
     Indication: ULCERATIVE KERATITIS
     Dosage: 1 GTT, 10 TIMES
     Route: 047
     Dates: start: 20090323
  3. COMBIGAN [Suspect]
     Active Substance: BRIMONIDINE TARTRATE\TIMOLOL MALEATE
     Indication: GLAUCOMA
     Dosage: 1 GTT, BID
     Route: 047
     Dates: start: 20090420, end: 20090423
  4. HOMATROPINE\HOMATROPINE HYDROBROMIDE\HOMATROPINE METHYLBROMIDE [Concomitant]
     Indication: ULCERATIVE KERATITIS
     Dosage: 1 GTT, BID
     Route: 047
     Dates: start: 20090319

REACTIONS (1)
  - Ulcerative keratitis [Recovered/Resolved]

NARRATIVE: CASE EVENT DATE: 20090420
